FAERS Safety Report 9685344 (Version 2)
Quarter: 2013Q4

REPORT INFORMATION
  Report Type: Spontaneous
  Country: ES (occurrence: ES)
  Receive Date: 20131113
  Receipt Date: 20131213
  Transmission Date: 20140711
  Serious: Yes (Other)
  Sender: FDA-Public Use
  Company Number: PHHY2013ES127458

PATIENT
  Age: 50 Year
  Sex: Female

DRUGS (4)
  1. EVEROLIMUS [Suspect]
     Indication: BREAST CANCER METASTATIC
     Dosage: UNK
     Route: 048
     Dates: start: 201205, end: 201208
  2. EXEMESTANE [Suspect]
     Indication: BREAST CANCER METASTATIC
     Dosage: UNK
     Route: 048
     Dates: start: 201205, end: 201208
  3. MORPHINE [Concomitant]
  4. NALOXONE [Concomitant]

REACTIONS (2)
  - Cardiac failure [Recovering/Resolving]
  - Dyspnoea [Recovering/Resolving]
